FAERS Safety Report 6587550-7 (Version None)
Quarter: 2010Q1

REPORT INFORMATION
  Report Type: 
  Country: None (occurrence: None)
  Receive Date: 20100218
  Receipt Date: 20100210
  Transmission Date: 20100710
  Serious: Yes (Hospitalization)
  Sender: FDA-Public Use
  Company Number: US-BIOGENIDEC-2010BI001122

PATIENT
  Age: 43 Year
  Sex: Female
  Weight: 65 kg

DRUGS (2)
  1. TYSABRI [Suspect]
     Indication: MULTIPLE SCLEROSIS
     Route: 042
     Dates: start: 20061004, end: 20091101
  2. TYSABRI [Suspect]
     Route: 042
     Dates: start: 20050103, end: 20050209

REACTIONS (3)
  - ASTHENIA [None]
  - FALL [None]
  - MULTIPLE SCLEROSIS RELAPSE [None]
